FAERS Safety Report 7672154-5 (Version None)
Quarter: 2011Q3

REPORT INFORMATION
  Report Type: 
  Country: None (occurrence: None)
  Receive Date: 20110809
  Receipt Date: 20110803
  Transmission Date: 20111222
  Serious: Yes (Life-Threatening, Hospitalization, Other)
  Sender: FDA-Public Use
  Company Number: PHHY2011DE62971

PATIENT
  Age: 71 Year
  Sex: Female
  Weight: 55 kg

DRUGS (11)
  1. FUROSEMIDE [Concomitant]
     Dosage: 1 DF,DAILY
     Dates: start: 19900101, end: 20110413
  2. CITALOPRAM HYDROBROMIDE [Concomitant]
     Dosage: 0.5 DF, DAILY
     Dates: start: 20060101
  3. SPIRIVA [Concomitant]
     Dosage: UNK UKN, UNK
     Dates: start: 20050101
  4. RASILEZ [Suspect]
     Dosage: 1 DF, UNK
     Route: 048
     Dates: start: 20110403, end: 20110413
  5. THEOPHYLLINE [Concomitant]
     Dosage: 2 DF, DAILY
     Dates: start: 19900101
  6. AMLODIPINE [Concomitant]
     Dosage: 1 DF, DAILY
     Dates: start: 20050101, end: 20110413
  7. RAMIPRIL [Concomitant]
     Dosage: 2 DF DAILY
     Dates: start: 20040101, end: 20110413
  8. VIANI [Concomitant]
     Dosage: 2*1 PUFF DAILY
     Dates: start: 20050101
  9. ATROVENT [Concomitant]
     Dosage: 3*20 GGT DAILY
     Dates: start: 20000101
  10. PROMETHAZINE [Concomitant]
     Dosage: 3-4 DOSES DAILY
     Dates: start: 20100501
  11. ALBUTEROL [Concomitant]
     Dosage: 3*10 GGT DAILY
     Dates: start: 20000101

REACTIONS (6)
  - RENAL FAILURE ACUTE [None]
  - DEHYDRATION [None]
  - AZOTAEMIA [None]
  - NAUSEA [None]
  - BLOOD CREATININE INCREASED [None]
  - VOMITING [None]
